FAERS Safety Report 6785512-8 (Version None)
Quarter: 2010Q2

REPORT INFORMATION
  Report Type: 
  Country: None (occurrence: None)
  Receive Date: 20100623
  Receipt Date: 20100617
  Transmission Date: 20101027
  Serious: Yes (Death, Other)
  Sender: FDA-Public Use
  Company Number: US-CELGENEUS-163-21880-10060125

PATIENT
  Sex: Female

DRUGS (4)
  1. REVLIMID [Suspect]
     Indication: MYELODYSPLASTIC SYNDROME
     Route: 048
     Dates: start: 20071001, end: 20100501
  2. REVLIMID [Suspect]
     Route: 048
     Dates: start: 20070601
  3. REVLIMID [Suspect]
     Dosage: 5MG-10MG
     Route: 048
     Dates: start: 20070601
  4. REVLIMID [Suspect]
     Dates: start: 20061201

REACTIONS (4)
  - LIVER ABSCESS [None]
  - NEOPLASM PROGRESSION [None]
  - PANCREATIC CARCINOMA [None]
  - PNEUMOCOCCAL SEPSIS [None]
